FAERS Safety Report 6901952-8 (Version None)
Quarter: 2010Q3

REPORT INFORMATION
  Report Type: 
  Country: None (occurrence: None)
  Receive Date: 20100803
  Receipt Date: 20080331
  Transmission Date: 20110219
  Serious: No
  Sender: FDA-Public Use
  Company Number: US-PFIZER INC-2008028351

PATIENT
  Sex: Female
  Weight: 68.181 kg

DRUGS (2)
  1. LYRICA [Suspect]
     Indication: INTERVERTEBRAL DISC PROTRUSION
     Route: 048
     Dates: start: 20080301
  2. ANTIHYPERTENSIVES [Concomitant]
     Route: 048

REACTIONS (2)
  - BLOOD PRESSURE DECREASED [None]
  - DIZZINESS [None]
